FAERS Safety Report 16825048 (Version 1)
Quarter: 2019Q3

REPORT INFORMATION
  Report Type: Spontaneous
  Country: JP (occurrence: JP)
  Receive Date: 20190919
  Receipt Date: 20190919
  Transmission Date: 20191005
  Serious: Yes (Death, Other)
  Sender: FDA-Public Use
  Company Number: JP-AMGEN-JPNSP2019154127

PATIENT
  Age: 9 Decade

DRUGS (1)
  1. ROMIPLATE [Suspect]
     Active Substance: ROMIPLOSTIM
     Indication: APLASTIC ANAEMIA
     Dosage: 10 MICROGRAM/KILOGRAM, QWK
     Route: 058
     Dates: start: 201908, end: 201909

REACTIONS (1)
  - Aplastic anaemia [Fatal]

NARRATIVE: CASE EVENT DATE: 201909
